FAERS Safety Report 24869757 (Version 1)
Quarter: 2025Q1

REPORT INFORMATION
  Report Type: Report from Study
  Country: BY (occurrence: BY)
  Receive Date: 20250121
  Receipt Date: 20250121
  Transmission Date: 20250409
  Serious: Yes (Death, Hospitalization, Other)
  Sender: MYLAN
  Company Number: BY-MYLANLABS-2025M1005039

PATIENT
  Age: 65 Year
  Sex: Male
  Weight: 60 kg

DRUGS (11)
  1. PRETOMANID [Suspect]
     Active Substance: PRETOMANID
     Indication: Tuberculosis
     Dosage: 200 MILLIGRAM, QD
     Route: 048
     Dates: start: 20230822, end: 20240205
  2. BEDAQUILINE [Suspect]
     Active Substance: BEDAQUILINE
     Indication: Tuberculosis
     Dosage: 400 MILLIGRAM, QD
     Route: 048
     Dates: start: 20230822
  3. BEDAQUILINE [Suspect]
     Active Substance: BEDAQUILINE
     Dosage: 200 MILLIGRAM, 3XW (200 MILLIGRAM, 3XW (400 MG OD FOR 2 WEEKS, THEN 200 MG TIW PO)
     Route: 048
     Dates: end: 20240205
  4. LINEZOLID [Suspect]
     Active Substance: LINEZOLID
     Indication: Tuberculosis
     Dosage: 600 MILLIGRAM, QD (600 MG OD PO FOR 112 DOSES THEN 300 MG OD)
     Route: 048
     Dates: start: 20230822
  5. LINEZOLID [Suspect]
     Active Substance: LINEZOLID
     Dosage: 300 MILLIGRAM, QD(600 MG OD PO FOR 112 DOSES THEN 300 MG OD)
     Route: 048
     Dates: end: 20240205
  6. MOXIFLOXACIN [Suspect]
     Active Substance: MOXIFLOXACIN
     Indication: Tuberculosis
     Dosage: 400 MILLIGRAM, QD
     Route: 048
     Dates: start: 20230822, end: 20240205
  7. Ferronat [Concomitant]
     Indication: Anaemia
     Route: 065
     Dates: start: 20231123, end: 20240126
  8. FOLIC ACID [Concomitant]
     Active Substance: FOLIC ACID
     Indication: Anaemia
     Route: 065
     Dates: start: 20231123
  9. CHLORPROTHIXENE HYDROCHLORIDE [Concomitant]
     Active Substance: CHLORPROTHIXENE HYDROCHLORIDE
     Indication: Prophylaxis
     Route: 065
     Dates: start: 20230816, end: 20231008
  10. OMEPRAZOLE [Concomitant]
     Active Substance: OMEPRAZOLE
     Indication: Prophylaxis
     Route: 065
     Dates: start: 20230816, end: 20230908
  11. HUMAN RED BLOOD CELL [Concomitant]
     Active Substance: HUMAN RED BLOOD CELL
     Indication: Anaemia
     Route: 042
     Dates: start: 20231125, end: 20231125

REACTIONS (2)
  - Bronchial carcinoma [Fatal]
  - Anaemia [Unknown]

NARRATIVE: CASE EVENT DATE: 20231124
